FAERS Safety Report 25761935 (Version 2)
Quarter: 2025Q4

REPORT INFORMATION
  Report Type: Spontaneous
  Country: US (occurrence: US)
  Receive Date: 20250904
  Receipt Date: 20251208
  Transmission Date: 20260118
  Serious: No
  Sender: SANOFI AVENTIS
  Company Number: US-SA-2025SA264219

PATIENT
  Age: 83 Year
  Sex: Female

DRUGS (7)
  1. DUPIXENT [Suspect]
     Active Substance: DUPILUMAB
     Indication: Dermatitis atopic
     Dosage: 300 MG, QOW
     Route: 058
     Dates: start: 20250805
  2. FLUOXETINE HYDROCHLORIDE [Concomitant]
     Active Substance: FLUOXETINE HYDROCHLORIDE
  3. GLIPIZIDE [Concomitant]
     Active Substance: GLIPIZIDE
  4. SIMVASTATIN [Concomitant]
     Active Substance: SIMVASTATIN
  5. TRAZODONE HCL [Concomitant]
     Active Substance: TRAZODONE HYDROCHLORIDE
  6. MEDICAL FOOD [Concomitant]
     Active Substance: MEDICAL FOOD
  7. XARELTO [Concomitant]
     Active Substance: RIVAROXABAN

REACTIONS (2)
  - Rhinorrhoea [Not Recovered/Not Resolved]
  - Drug ineffective [Unknown]

NARRATIVE: CASE EVENT DATE: 20250101
